FAERS Safety Report 6141003-9 (Version None)
Quarter: 2009Q2

REPORT INFORMATION
  Report Type: 
  Country: None (occurrence: None)
  Receive Date: 20090402
  Receipt Date: 20090330
  Transmission Date: 20091009
  Serious: Yes (Other)
  Sender: FDA-Public Use
  Company Number: US-ASTRAZENECA-2008UW26917

PATIENT
  Age: 14909 Day
  Sex: Female
  Weight: 117.5 kg

DRUGS (11)
  1. SEROQUEL [Suspect]
     Indication: EMOTIONAL DISORDER
     Dosage: 25 MG, 200 MG
     Route: 048
     Dates: start: 19980101, end: 20070111
  2. SEROQUEL [Suspect]
     Indication: MENTAL DISORDER
     Dosage: 25 MG, 200 MG
     Route: 048
     Dates: start: 19980101, end: 20070111
  3. SEROQUEL [Suspect]
     Indication: ANXIETY
     Dosage: 25 MG, 200 MG
     Route: 048
     Dates: start: 19980101, end: 20070111
  4. SEROQUEL [Suspect]
     Indication: POST-TRAUMATIC STRESS DISORDER
     Dosage: 25 MG, 200 MG
     Route: 048
     Dates: start: 19980101, end: 20070111
  5. SEROQUEL [Suspect]
     Indication: DEPRESSION
     Dosage: 25 MG, 200 MG
     Route: 048
     Dates: start: 19980101, end: 20070111
  6. RISPERDAL [Concomitant]
     Dates: start: 20080201, end: 20080501
  7. BUPROPION HCL [Concomitant]
     Dates: start: 19980101
  8. ZOLOFT [Concomitant]
     Dates: start: 19980101
  9. XANAX [Concomitant]
     Dates: start: 19980101
  10. METFORMIN HCL [Concomitant]
     Dates: start: 20070523
  11. WELLBUTRIN [Concomitant]
     Dates: start: 19980101

REACTIONS (7)
  - BLOOD CHOLESTEROL INCREASED [None]
  - DIABETES MELLITUS [None]
  - HYPERTENSION [None]
  - OBESITY [None]
  - SUICIDE ATTEMPT [None]
  - THROMBOSIS [None]
  - TRANSIENT ISCHAEMIC ATTACK [None]
